FAERS Safety Report 7014248-3 (Version None)
Quarter: 2010Q3

REPORT INFORMATION
  Report Type: 
  Country: None (occurrence: None)
  Receive Date: 20100927
  Receipt Date: 20100913
  Transmission Date: 20110219
  Serious: Yes (Other)
  Sender: FDA-Public Use
  Company Number: PHHY2010BR30914

PATIENT
  Age: 77 Year
  Sex: Male

DRUGS (2)
  1. DICLOFENAC [Suspect]
     Dosage: 1 TABLET  A DAY
     Route: 048
  2. TYLENOL [Concomitant]
     Indication: PYREXIA
     Dosage: 1 DF, Q8H
     Route: 048
     Dates: start: 20100511

REACTIONS (3)
  - BACK PAIN [None]
  - DENGUE FEVER [None]
  - HEADACHE [None]
